FAERS Safety Report 10480902 (Version 1)
Quarter: 2014Q3

REPORT INFORMATION
  Report Type: Spontaneous
  Country: US (occurrence: US)
  Receive Date: 20140929
  Receipt Date: 20140929
  Transmission Date: 20150326
  Serious: Yes (Other)
  Sender: FDA-Public Use
  Company Number: US-BAYER-2014-139266

PATIENT

DRUGS (3)
  1. CARVEDILOL. [Concomitant]
     Active Substance: CARVEDILOL
     Route: 015
  2. NIFEDIPINE. [Suspect]
     Active Substance: NIFEDIPINE
     Route: 015
  3. IRON [FERROUS SULFATE] [Concomitant]
     Route: 015

REACTIONS (1)
  - Low birth weight baby [None]
